FAERS Safety Report 7253191-1 (Version None)
Quarter: 2011Q1

REPORT INFORMATION
  Report Type: 
  Country: None (occurrence: None)
  Receive Date: 20110129
  Receipt Date: 20100309
  Transmission Date: 20110831
  Serious: No
  Sender: FDA-Public Use
  Company Number: US-ABBOTT-10P-163-0623234-00

PATIENT
  Sex: Male
  Weight: 102.6 kg

DRUGS (6)
  1. COZAAR [Concomitant]
     Indication: HYPERTENSION
  2. ZOLPIDEM [Concomitant]
     Indication: PRODUCT USED FOR UNKNOWN INDICATION
  3. GLYBURIDE [Concomitant]
     Indication: DIABETES MELLITUS
  4. PRILOSEC [Concomitant]
     Indication: PRODUCT USED FOR UNKNOWN INDICATION
  5. HUMIRA [Suspect]
     Indication: PSORIASIS
     Dates: start: 20091229
  6. COZAAR [Concomitant]
     Indication: PROPHYLAXIS

REACTIONS (6)
  - SKIN INFECTION [None]
  - CHILLS [None]
  - DRUG INEFFECTIVE [None]
  - OEDEMA PERIPHERAL [None]
  - FATIGUE [None]
  - PRURITUS [None]
